FAERS Safety Report 10411085 (Version 2)
Quarter: 2014Q4

REPORT INFORMATION
  Report Type: Spontaneous
  Country: CA (occurrence: CA)
  Receive Date: 20140826
  Receipt Date: 20141003
  Transmission Date: 20150528
  Serious: Yes (Hospitalization, Other)
  Sender: FDA-Public Use
  Company Number: CA-ELI_LILLY_AND_COMPANY-CA201408006025

PATIENT
  Sex: Male

DRUGS (4)
  1. HUMULIN N [Suspect]
     Active Substance: INSULIN HUMAN
     Dosage: 58 U, QD
     Route: 065
     Dates: start: 20140805
  2. ALCOHOL. [Concomitant]
     Active Substance: ALCOHOL
  3. HUMULIN N [Suspect]
     Active Substance: INSULIN HUMAN
     Indication: DIABETES MELLITUS
     Dosage: 55 U, QD
     Route: 065
     Dates: start: 2007
  4. ZUCLOPENTHIXOL [Concomitant]
     Active Substance: ZUCLOPENTHIXOL
     Indication: AFFECTIVE DISORDER

REACTIONS (4)
  - Drug ineffective [Recovered/Resolved]
  - Vision blurred [Unknown]
  - Hypertension [Unknown]
  - Diabetic coma [Recovered/Resolved]
